FAERS Safety Report 10409658 (Version 2)
Quarter: 2014Q3

REPORT INFORMATION
  Report Type: Spontaneous
  Country: US (occurrence: None)
  Receive Date: 20140822
  Receipt Date: 20140828
  Transmission Date: 20150326
  Serious: Yes (Other)
  Sender: FDA-Public Use
  Company Number: AUR-APL-2014-08814

PATIENT
  Age: 54 Year
  Sex: Male
  Weight: 108.8 kg

DRUGS (8)
  1. BIOTIN (BIOTIN) [Concomitant]
  2. NEXIUM 24HR [Suspect]
     Active Substance: ESOMEPRAZOLE MAGNESIUM
     Indication: GASTROOESOPHAGEAL REFLUX DISEASE
     Dates: start: 201407
  3. METFORMIN [Concomitant]
     Active Substance: METFORMIN HYDROCHLORIDE
  4. GLIMEPIRIDE (GLIMEPIRIDE) [Concomitant]
     Active Substance: GLIMEPIRIDE
  5. ALLOPURINOL (ALLOPURINOL) [Concomitant]
     Active Substance: ALLOPURINOL
  6. NEXIUM [Suspect]
     Active Substance: ESOMEPRAZOLE MAGNESIUM
     Indication: GASTROOESOPHAGEAL REFLUX DISEASE
     Route: 048
     Dates: start: 2004, end: 201407
  7. LISINOPRIL. [Suspect]
     Active Substance: LISINOPRIL
     Indication: BLOOD PRESSURE
     Route: 048
  8. FISH OIL (FISH OIL) [Concomitant]
     Active Substance: FISH OIL

REACTIONS (17)
  - Intentional product misuse [None]
  - Economic problem [None]
  - Apparent death [None]
  - Dysphagia [None]
  - Gastrooesophageal reflux disease [None]
  - Blood cholesterol increased [None]
  - Diabetes mellitus [None]
  - Nausea [None]
  - Withdrawal syndrome [None]
  - Drug dose omission [None]
  - Carotid artery occlusion [None]
  - Malaise [None]
  - Off label use [None]
  - Drug ineffective [None]
  - Hair growth abnormal [None]
  - Oesophageal disorder [None]
  - Odynophagia [None]

NARRATIVE: CASE EVENT DATE: 200809
